FAERS Safety Report 7275013-5 (Version None)
Quarter: 2011Q1

REPORT INFORMATION
  Report Type: 
  Country: None (occurrence: None)
  Receive Date: 20110203
  Receipt Date: 20110203
  Transmission Date: 20110831
  Serious: Yes (Disabling)
  Sender: FDA-Public Use
  Company Number: None

PATIENT
  Age: 49 Year
  Sex: Female
  Weight: 79.3795 kg

DRUGS (1)
  1. ALCOHOL PREP PADS MEDIUM TRIAD [Suspect]
     Indication: MULTIPLE SCLEROSIS
     Dosage: 1 PAD TO ASSEMBLE + 1 PAD BEFO EVERY OTHER DAY SQ
     Route: 058
     Dates: start: 20100101, end: 20101231

REACTIONS (4)
  - INFECTION [None]
  - IMPAIRED HEALING [None]
  - WOUND COMPLICATION [None]
  - CELLULITIS [None]
